FAERS Safety Report 5124302-9 (Version None)
Quarter: 2006Q4

REPORT INFORMATION
  Report Type: 
  Country: None (occurrence: None)
  Receive Date: 20061010
  Receipt Date: 20061005
  Transmission Date: 20070319
  Serious: Yes (Hospitalization)
  Sender: FDA-Public Use
  Company Number: GB-BOEHRINGER INGELHEIM PHARMACEUTICALS, INC.-2006-UK-04149UK

PATIENT
  Age: 80 Year
  Sex: Male
  Weight: 97.7 kg

DRUGS (9)
  1. PERSANTIN (00015/0052R) [Suspect]
     Indication: PROPHYLAXIS
     Route: 048
     Dates: start: 20060915, end: 20060918
  2. ASPIRIN [Concomitant]
     Indication: PROPHYLAXIS
     Route: 048
  3. ATENOLOL [Concomitant]
     Indication: HYPERTENSION
     Route: 048
     Dates: start: 20060918, end: 20060920
  4. CITALOPRAM HYDROBROMIDE [Concomitant]
     Indication: DEPRESSION
     Route: 048
  5. ACETAMINOPHEN W/ CODEINE [Concomitant]
     Dosage: 2DF 4/1 DAYS
  6. MELOXICAM [Concomitant]
     Route: 048
  7. RABERPRAZOLE [Concomitant]
     Route: 048
  8. SIMVASTATIN [Concomitant]
     Indication: PROPHYLAXIS
     Route: 048
  9. ZOLPIDEM TARTRATE [Concomitant]
     Route: 048

REACTIONS (3)
  - CHEST PAIN [None]
  - DYSPNOEA EXERTIONAL [None]
  - ELECTROCARDIOGRAM T WAVE INVERSION [None]
